FAERS Safety Report 16583191 (Version 1)
Quarter: 2019Q3

REPORT INFORMATION
  Report Type: Spontaneous
  Country: TR (occurrence: TR)
  Receive Date: 20190717
  Receipt Date: 20190717
  Transmission Date: 20191004
  Serious: Yes (Other)
  Sender: FDA-Public Use
  Company Number: TR-STRIDES ARCOLAB LIMITED-2019SP005986

PATIENT
  Sex: Female

DRUGS (2)
  1. TACROLIMUS. [Suspect]
     Active Substance: TACROLIMUS
     Indication: IMMUNOSUPPRESSANT DRUG THERAPY
     Dosage: 0.15 MG/KG/DAY, STARTED ON POST-TRANSPLANT DAY 3
     Route: 065
  2. MYCOPHENOLATE MOFETIL. [Suspect]
     Active Substance: MYCOPHENOLATE MOFETIL
     Indication: IMMUNOSUPPRESSANT DRUG THERAPY
     Dosage: 20 MG/KG/DAY,PRE-OPERATIVELY
     Route: 065

REACTIONS (12)
  - Anaphylactic reaction [Unknown]
  - Hyperchloraemia [Unknown]
  - Hypokalaemia [Unknown]
  - Hypoalbuminaemia [Unknown]
  - Diarrhoea [Recovered/Resolved]
  - pH urine increased [Unknown]
  - Eosinophilic oesophagitis [Unknown]
  - Acidosis [Recovered/Resolved]
  - Dermatitis atopic [Unknown]
  - Duodenitis [Unknown]
  - Food allergy [Unknown]
  - Renal tubular acidosis [Recovered/Resolved]
